FAERS Safety Report 21375028 (Version 1)
Quarter: 2022Q3

REPORT INFORMATION
  Report Type: Spontaneous
  Country: US (occurrence: US)
  Receive Date: 20220926
  Receipt Date: 20220926
  Transmission Date: 20221027
  Serious: No
  Sender: FDA-Public Use
  Company Number: US-BRISTOL-MYERS SQUIBB COMPANY-2022-110736

PATIENT
  Age: 70 Year
  Sex: Female
  Weight: 64 kg

DRUGS (19)
  1. REVLIMID [Suspect]
     Active Substance: LENALIDOMIDE
     Indication: Plasma cell myeloma
     Dosage: FREQUENCY- 1 X 21/28 DAYS
     Route: 048
     Dates: start: 20210219
  2. REVLIMID [Suspect]
     Active Substance: LENALIDOMIDE
     Dosage: FREQUENCY-USE AS DIRECTED
     Route: 048
     Dates: start: 20210212, end: 20210513
  3. REVLIMID [Suspect]
     Active Substance: LENALIDOMIDE
     Dosage: FREQUENCY-USE AS DIRECTED
     Route: 048
     Dates: start: 20210513, end: 20211009
  4. REVLIMID [Suspect]
     Active Substance: LENALIDOMIDE
     Dosage: FREQUENCY-USE AS DIRECTED
     Route: 048
     Dates: start: 20211009, end: 20211111
  5. REVLIMID [Suspect]
     Active Substance: LENALIDOMIDE
     Dosage: FREQUENCY-USE AS DIRECTED
     Route: 048
     Dates: start: 20211108, end: 20211208
  6. REVLIMID [Suspect]
     Active Substance: LENALIDOMIDE
     Dosage: FREQUENCY-USE AS DIRECTED
     Route: 048
     Dates: start: 20211208, end: 20220103
  7. REVLIMID [Suspect]
     Active Substance: LENALIDOMIDE
     Dosage: FREQUENCY-USE AS DIRECTED
     Route: 048
     Dates: start: 20220103, end: 20220128
  8. REVLIMID [Suspect]
     Active Substance: LENALIDOMIDE
     Dosage: FREQUENCY-USE AS DIRECTED
     Route: 048
     Dates: start: 20220128, end: 20220225
  9. REVLIMID [Suspect]
     Active Substance: LENALIDOMIDE
     Dosage: FREQUENCY-USE AS DIRECTED
     Route: 048
     Dates: start: 20220225, end: 20220328
  10. REVLIMID [Suspect]
     Active Substance: LENALIDOMIDE
     Dosage: FREQUENCY-USE AS DIRECTED
     Route: 048
     Dates: start: 20220328, end: 20220425
  11. REVLIMID [Suspect]
     Active Substance: LENALIDOMIDE
     Dosage: FREQUENCY-USE AS DIRECTED
     Route: 048
     Dates: start: 20220425, end: 20220523
  12. REVLIMID [Suspect]
     Active Substance: LENALIDOMIDE
     Dosage: FREQUENCY-USE AS DIRECTED
     Route: 048
     Dates: start: 20220523, end: 20220615
  13. REVLIMID [Suspect]
     Active Substance: LENALIDOMIDE
     Dosage: FREQUENCY-USE AS DIRECTED
     Route: 048
     Dates: start: 20220615, end: 20220721
  14. REVLIMID [Suspect]
     Active Substance: LENALIDOMIDE
     Dosage: FREQUENCY-USE AS DIRECTED
     Route: 048
     Dates: start: 20220721, end: 20220817
  15. REVLIMID [Suspect]
     Active Substance: LENALIDOMIDE
     Dosage: FREQUENCY-USE AS DIRECTED
     Route: 048
     Dates: start: 20220817, end: 20220916
  16. REVLIMID [Suspect]
     Active Substance: LENALIDOMIDE
     Dosage: FREQUENCY-USE AS DIRECTED
     Route: 048
     Dates: start: 20220721, end: 20220817
  17. REVLIMID [Suspect]
     Active Substance: LENALIDOMIDE
     Dosage: FREQUENCY-USE AS DIRECTED
     Route: 048
     Dates: start: 20220817, end: 20220916
  18. REVLIMID [Suspect]
     Active Substance: LENALIDOMIDE
     Dosage: FREQUENCY-USE AS DIRECTED
     Route: 048
     Dates: start: 20220916
  19. ACYCLOVIR [Concomitant]
     Active Substance: ACYCLOVIR
     Indication: Product used for unknown indication
     Route: 048
     Dates: start: 20210217

REACTIONS (1)
  - Pain in extremity [Not Recovered/Not Resolved]

NARRATIVE: CASE EVENT DATE: 20220901
